FAERS Safety Report 9254187 (Version 2)
Quarter: 2013Q2

REPORT INFORMATION
  Report Type: Spontaneous
  Country: JP (occurrence: JP)
  Receive Date: 20130425
  Receipt Date: 20130621
  Transmission Date: 20140414
  Serious: Yes (Death, Hospitalization, Other)
  Sender: FDA-Public Use
  Company Number: PHHY2013JP039509

PATIENT
  Age: 76 Year
  Sex: Male
  Weight: 41 kg

DRUGS (5)
  1. AFINITOR [Suspect]
     Indication: RENAL CELL CARCINOMA
     Dosage: 10 MG, QD
     Route: 048
     Dates: start: 20130115, end: 20130129
  2. AFINITOR [Suspect]
     Dosage: 5 MG, QD
     Route: 048
     Dates: start: 20130215, end: 20130410
  3. LOXONIN [Concomitant]
  4. MUCOSTA [Concomitant]
  5. AZUNOL GARGLE LIQUID [Concomitant]

REACTIONS (7)
  - Renal cell carcinoma [Fatal]
  - Gastrointestinal haemorrhage [Recovering/Resolving]
  - Anaemia [Unknown]
  - Faeces discoloured [Recovering/Resolving]
  - Gastric ulcer [Recovered/Resolved]
  - Large intestinal ulcer [Recovered/Resolved]
  - Blood albumin decreased [Unknown]
